FAERS Safety Report 7659658-6 (Version None)
Quarter: 2011Q3

REPORT INFORMATION
  Report Type: 
  Country: None (occurrence: None)
  Receive Date: 20110802
  Receipt Date: 20110721
  Transmission Date: 20111222
  Serious: Yes (Hospitalization, Other)
  Sender: FDA-Public Use
  Company Number: 2009SP020449

PATIENT
  Age: 20 Year
  Sex: Female
  Weight: 61.2356 kg

DRUGS (5)
  1. ALBUTEROL SULFATE AUTOHALER [Concomitant]
  2. NUVARING [Suspect]
     Indication: CONTRACEPTION
     Dosage: 1 DF;  VAG
     Route: 067
     Dates: start: 20030908, end: 20040101
  3. ADDERALL 5 [Concomitant]
  4. ALLEGRA [Concomitant]
  5. SINGULAIR [Concomitant]

REACTIONS (17)
  - SINUSITIS [None]
  - CONDITION AGGRAVATED [None]
  - SCAR [None]
  - ASTHMA [None]
  - DYSMENORRHOEA [None]
  - THROMBOSIS [None]
  - OEDEMA PERIPHERAL [None]
  - POLYMENORRHOEA [None]
  - THORACIC OUTLET SYNDROME [None]
  - SUBCLAVIAN VEIN THROMBOSIS [None]
  - MENORRHAGIA [None]
  - MUSCULOSKELETAL DISCOMFORT [None]
  - PALLOR [None]
  - DYSPEPSIA [None]
  - CERVICITIS [None]
  - PAIN [None]
  - CELLULITIS [None]
